FAERS Safety Report 4431221-X (Version None)
Quarter: 2004Q3

REPORT INFORMATION
  Report Type: 
  Country: None (occurrence: None)
  Receive Date: 20040824
  Receipt Date: 20040518
  Transmission Date: 20050211
  Serious: Yes (Death, Hospitalization)
  Sender: FDA-Public Use
  Company Number: 200413845US

PATIENT
  Age: 39 Year
  Sex: Female
  Weight: 206 kg

DRUGS (6)
  1. LOVENOX [Suspect]
     Indication: PULMONARY EMBOLISM
     Route: 058
     Dates: start: 20040515, end: 20040518
  2. PREMARIN [Concomitant]
     Route: 048
     Dates: start: 20040515, end: 20040518
  3. TORADOL [Concomitant]
     Dosage: DOSE: 30 (X 2 DOSES)
     Route: 042
     Dates: start: 20040517, end: 20040518
  4. MOTRIN [Concomitant]
     Dosage: DOSE: 800 (X 1 DOSE)
     Route: 048
     Dates: start: 20040516, end: 20040516
  5. METFORMIN HCL [Concomitant]
     Route: 048
     Dates: start: 20040516, end: 20040517
  6. CEFOXITIN [Concomitant]
     Route: 042
     Dates: start: 20040514, end: 20040516

REACTIONS (23)
  - ABDOMINAL TENDERNESS [None]
  - ACTIVATED PARTIAL THROMBOPLASTIN TIME PROLONGED [None]
  - ACUTE RESPIRATORY FAILURE [None]
  - ASCITES [None]
  - BONE MARROW DISORDER [None]
  - CARDIAC ARREST [None]
  - CARDIO-RESPIRATORY ARREST [None]
  - CONSTIPATION [None]
  - EMBOLISM [None]
  - FIBRIN D DIMER INCREASED [None]
  - HAEMATOCRIT DECREASED [None]
  - HAEMOGLOBIN DECREASED [None]
  - HYPOTENSION [None]
  - LETHARGY [None]
  - PERITONEAL HAEMORRHAGE [None]
  - PLATELET COUNT DECREASED [None]
  - POST PROCEDURAL HAEMORRHAGE [None]
  - POSTOPERATIVE ILEUS [None]
  - PROTHROMBIN TIME PROLONGED [None]
  - PULMONARY CONGESTION [None]
  - PULMONARY OEDEMA [None]
  - RENAL TUBULAR NECROSIS [None]
  - WHITE BLOOD CELL COUNT INCREASED [None]
